FAERS Safety Report 5194386-0 (Version None)
Quarter: 2006Q4

REPORT INFORMATION
  Report Type: 
  Country: None (occurrence: None)
  Receive Date: 20061228
  Receipt Date: 20061219
  Transmission Date: 20070319
  Serious: Yes (Death, Other)
  Sender: FDA-Public Use
  Company Number: FR-PFIZER INC-2006155117

PATIENT
  Age: 70 Year
  Sex: Male

DRUGS (2)
  1. INSPRA [Suspect]
  2. CARDENSIEL [Interacting]

REACTIONS (4)
  - ANURIA [None]
  - CIRCULATORY COLLAPSE [None]
  - DEATH [None]
  - DRUG INTERACTION [None]
